FAERS Safety Report 11531256 (Version 1)
Quarter: 2015Q3

REPORT INFORMATION
  Report Type: Spontaneous
  Country: CA (occurrence: CA)
  Receive Date: 20150921
  Receipt Date: 20150921
  Transmission Date: 20151125
  Serious: Yes (Other)
  Sender: FDA-Public Use
  Company Number: CA-ENDO PHARMACEUTICALS INC.-2015-002532

PATIENT
  Age: 64 Year
  Sex: Female

DRUGS (1)
  1. XIAFLEX [Suspect]
     Active Substance: COLLAGENASE CLOSTRIDIUM HISTOLYTICUM
     Indication: DUPUYTREN^S CONTRACTURE
     Route: 026
     Dates: start: 20150722

REACTIONS (3)
  - Contusion [Recovered/Resolved]
  - Lymphadenopathy [Recovered/Resolved]
  - Labyrinthitis [Recovering/Resolving]

NARRATIVE: CASE EVENT DATE: 20150723
